FAERS Safety Report 22323742 (Version 1)
Quarter: 2023Q2

REPORT INFORMATION
  Report Type: Spontaneous
  Country: US (occurrence: None)
  Receive Date: 20230512
  Receipt Date: 20230512
  Transmission Date: 20230722
  Serious: Yes (Hospitalization, Disabling, Other)
  Sender: FDA-Public Use
  Company Number: None

PATIENT
  Age: 25 Year
  Sex: Male
  Weight: 65.25 kg

DRUGS (8)
  1. FLUOXETINE HYDROCHLORIDE [Suspect]
     Active Substance: FLUOXETINE HYDROCHLORIDE
     Indication: Migraine
     Dosage: OTHER QUANTITY : 90 CAPSULE(S);?FREQUENCY : DAILY;?
     Route: 048
  2. Lithium 300 mg twice a day [Concomitant]
  3. UNSPECIFIED INGREDIENT [Concomitant]
     Active Substance: UNSPECIFIED INGREDIENT
  4. MELATONIN [Concomitant]
     Active Substance: MELATONIN
  5. BENEFIBER [Concomitant]
     Active Substance: STARCH, WHEAT
  6. prebiotic [Concomitant]
  7. chamomille [Concomitant]
  8. general multivitamin [Concomitant]

REACTIONS (15)
  - Derealisation [None]
  - Sensory disturbance [None]
  - Executive dysfunction [None]
  - Anger [None]
  - Substance-induced psychotic disorder [None]
  - Confusional state [None]
  - Disorientation [None]
  - Gastric disorder [None]
  - Eating disorder [None]
  - Stress [None]
  - Insomnia [None]
  - Post-traumatic stress disorder [None]
  - Nightmare [None]
  - Akathisia [None]
  - Recalled product administered [None]

NARRATIVE: CASE EVENT DATE: 20170913
